FAERS Safety Report 19052249 (Version 1)
Quarter: 2021Q1

REPORT INFORMATION
  Report Type: Spontaneous
  Country: US (occurrence: US)
  Receive Date: 20210324
  Receipt Date: 20210324
  Transmission Date: 20210420
  Serious: No
  Sender: FDA-Public Use
  Company Number: US-ELI_LILLY_AND_COMPANY-US202103007145

PATIENT
  Age: 55 Year
  Sex: Female

DRUGS (1)
  1. BAMLANIVIMAB. [Suspect]
     Active Substance: BAMLANIVIMAB
     Indication: COVID-19
     Dosage: UNK MG, SINGLE
     Route: 042
     Dates: start: 20210208, end: 20210208

REACTIONS (5)
  - Rash macular [Unknown]
  - Urticaria [Recovered/Resolved]
  - Vertigo [Recovered/Resolved]
  - Blister [Not Recovered/Not Resolved]
  - Facial pain [Unknown]

NARRATIVE: CASE EVENT DATE: 202102
